FAERS Safety Report 4823576-9 (Version None)
Quarter: 2005Q4

REPORT INFORMATION
  Report Type: 
  Country: None (occurrence: None)
  Receive Date: 20051031
  Receipt Date: 20051024
  Transmission Date: 20060501
  Serious: Yes (Hospitalization, Other)
  Sender: FDA-Public Use
  Company Number: 2005-02181

PATIENT
  Age: 78 Year
  Sex: Male

DRUGS (1)
  1. IMMUCYST [Suspect]
     Dosage: [10005003 - BLADDER CANCER], I.VES., BLADDER
     Route: 043
     Dates: end: 20051006

REACTIONS (4)
  - BOVINE TUBERCULOSIS [None]
  - DYSURIA [None]
  - POLLAKIURIA [None]
  - THERAPY NON-RESPONDER [None]
